FAERS Safety Report 15413375 (Version 1)
Quarter: 2018Q3

REPORT INFORMATION
  Report Type: Spontaneous
  Country: US (occurrence: US)
  Receive Date: 20180917
  Receipt Date: 20180917
  Transmission Date: 20181010
  Serious: No
  Sender: FDA-Public Use
  Company Number: None

PATIENT

DRUGS (1)
  1. CISPLATIN. [Suspect]
     Active Substance: CISPLATIN
     Dates: end: 20180821

REACTIONS (6)
  - Hyponatraemia [None]
  - Chills [None]
  - Leukopenia [None]
  - Vomiting [None]
  - Aspiration [None]
  - Febrile neutropenia [None]

NARRATIVE: CASE EVENT DATE: 20180823
